FAERS Safety Report 16040034 (Version 1)
Quarter: 2019Q1

REPORT INFORMATION
  Report Type: Report from Study
  Country: US (occurrence: US)
  Receive Date: 20190306
  Receipt Date: 20190306
  Transmission Date: 20190418
  Serious: Yes (Hospitalization)
  Sender: FDA-Public Use
  Company Number: US-ROCHE-2272358

PATIENT
  Sex: Female

DRUGS (2)
  1. OCREVUS [Suspect]
     Active Substance: OCRELIZUMAB
     Route: 065
     Dates: start: 20190128
  2. OCREVUS [Suspect]
     Active Substance: OCRELIZUMAB
     Indication: MULTIPLE SCLEROSIS
     Dosage: ONGOING; YES
     Route: 065
     Dates: start: 2018

REACTIONS (5)
  - Pharyngeal oedema [Unknown]
  - Infection [Unknown]
  - Urinary tract infection [Unknown]
  - Dysphagia [Unknown]
  - Malaise [Unknown]
